FAERS Safety Report 10039956 (Version 2)
Quarter: 2014Q1

REPORT INFORMATION
  Report Type: Spontaneous
  Country: HU (occurrence: HU)
  Receive Date: 20140326
  Receipt Date: 20140327
  Transmission Date: 20141002
  Serious: Yes (Death, Hospitalization)
  Sender: FDA-Public Use
  Company Number: HU-JNJFOC-20140315264

PATIENT
  Age: 62 Year
  Sex: Male
  Weight: 65 kg

DRUGS (7)
  1. REMICADE [Suspect]
     Indication: ANKYLOSING SPONDYLITIS
     Route: 042
     Dates: end: 20130619
  2. REMICADE [Suspect]
     Indication: ANKYLOSING SPONDYLITIS
     Route: 042
     Dates: start: 20121219
  3. NOOTROPIL [Concomitant]
     Route: 065
  4. CLOPIDOGREL [Concomitant]
     Route: 065
  5. NOLPAZA [Concomitant]
     Route: 065
  6. SOLU-MEDROL [Concomitant]
     Indication: PREMEDICATION
     Route: 065
  7. ETORICOXIB [Concomitant]
     Indication: ANKYLOSING SPONDYLITIS
     Route: 065

REACTIONS (6)
  - Intestinal obstruction [Fatal]
  - Aortic thrombosis [Fatal]
  - Mesenteric artery thrombosis [Fatal]
  - Gastrointestinal necrosis [Fatal]
  - Psychotic disorder [Recovered/Resolved]
  - Cerebrovascular disorder [Fatal]
